FAERS Safety Report 10714855 (Version 1)
Quarter: 2015Q1

REPORT INFORMATION
  Report Type: Report from Study
  Country: IT (occurrence: IT)
  Receive Date: 20150115
  Receipt Date: 20150115
  Transmission Date: 20150721
  Serious: Yes (Other)
  Sender: FDA-Public Use
  Company Number: IT-ABBVIE-14P-083-1325570-00

PATIENT
  Age: 56 Year
  Sex: Male
  Weight: 70 kg

DRUGS (1)
  1. DUODOPA [Suspect]
     Active Substance: CARBIDOPA\LEVODOPA
     Indication: PARKINSON^S DISEASE
     Dosage: MD 10(+3) ML?CR 1,8 ML/H?ED 2 ML
     Route: 050
     Dates: start: 20120621

REACTIONS (2)
  - Hernia [Unknown]
  - Granuloma [Unknown]

NARRATIVE: CASE EVENT DATE: 201410
